FAERS Safety Report 5945147-3 (Version None)
Quarter: 2008Q4

REPORT INFORMATION
  Report Type: 
  Country: None (occurrence: None)
  Receive Date: 20081107
  Receipt Date: 20081105
  Transmission Date: 20090506
  Serious: Yes (Death)
  Sender: FDA-Public Use
  Company Number: A0755265A

PATIENT
  Age: 81 Year
  Sex: Male
  Weight: 57 kg

DRUGS (1)
  1. SERETIDE [Suspect]
     Indication: BRONCHOPNEUMONIA
     Dates: start: 20060101, end: 20081020

REACTIONS (1)
  - DEATH [None]
